FAERS Safety Report 4567436-X (Version None)
Quarter: 2005Q1

REPORT INFORMATION
  Report Type: 
  Country: None (occurrence: None)
  Receive Date: 20050127
  Receipt Date: 20050114
  Transmission Date: 20050727
  Serious: Yes (Hospitalization)
  Sender: FDA-Public Use
  Company Number: HQWYE395605JAN05

PATIENT
  Age: 73 Year
  Sex: Male

DRUGS (4)
  1. PANTOZOL (PANTOPRAZOLE, TABLET, DELAYED RELEASE) [Suspect]
     Indication: PROPHYLAXIS
     Dosage: 20 MG 1X PER 1 DAY
     Route: 048
  2. ECOFENAC (DICLOFENAC SODIUM) [Suspect]
     Dosage: 75 MG 1X PER 1 DAY
     Route: 048
  3. KLACID (CLARITHROMYCIN) [Suspect]
     Indication: PNEUMONIA BACTERIAL
     Dosage: 500 MG 1X PER 1 DAY
     Route: 048
     Dates: start: 20041114, end: 20041124
  4. SINTROM [Suspect]
     Dosage: SOMETIMES SOME DF
     Route: 048

REACTIONS (9)
  - BLOOD ALBUMIN DECREASED [None]
  - BLOOD BILIRUBIN INCREASED [None]
  - CYTOMEGALOVIRUS INFECTION [None]
  - EPSTEIN-BARR VIRUS INFECTION [None]
  - HEPATIC ENZYME INCREASED [None]
  - HEPATOCELLULAR DAMAGE [None]
  - INTERNATIONAL NORMALISED RATIO INCREASED [None]
  - PNEUMONIA BACTERIAL [None]
  - PROTEIN TOTAL DECREASED [None]
